FAERS Safety Report 6342084-X (Version None)
Quarter: 2009Q3

REPORT INFORMATION
  Report Type: 
  Country: None (occurrence: None)
  Receive Date: 20090903
  Receipt Date: 20090903
  Transmission Date: 20100115
  Serious: Yes (Other)
  Sender: FDA-Public Use
  Company Number: None

PATIENT
  Age: 48 Year
  Sex: Male
  Weight: 73.4827 kg

DRUGS (1)
  1. VENLAFAXINE [Suspect]
     Dosage: SEE WRITTEN DESCRIPTION TOTAL OF 5 TIMES
     Dates: start: 20090810, end: 20090831

REACTIONS (10)
  - CONDITION AGGRAVATED [None]
  - CRYING [None]
  - DEPRESSED MOOD [None]
  - DEPRESSION [None]
  - EMOTIONAL DISORDER [None]
  - INSOMNIA [None]
  - MUSCLE TWITCHING [None]
  - PARADOXICAL DRUG REACTION [None]
  - PRODUCT QUALITY ISSUE [None]
  - SUICIDAL IDEATION [None]
